FAERS Safety Report 4796127-5 (Version None)
Quarter: 2005Q4

REPORT INFORMATION
  Report Type: 
  Country: None (occurrence: None)
  Receive Date: 20051007
  Receipt Date: 20050927
  Transmission Date: 20060501
  Serious: Yes (Hospitalization, Other)
  Sender: FDA-Public Use
  Company Number: US-2004-029812

PATIENT
  Age: 55 Year
  Sex: Female
  Weight: 82.5 kg

DRUGS (11)
  1. CLIMARA [Suspect]
     Indication: HORMONE REPLACEMENT THERAPY
     Dosage: SEE IMAGE
     Route: 062
     Dates: start: 19960416, end: 19970506
  2. CLIMARA [Suspect]
     Indication: HORMONE REPLACEMENT THERAPY
     Dosage: SEE IMAGE
     Route: 062
     Dates: start: 19970506, end: 19980623
  3. PREMARIN [Suspect]
     Indication: HORMONE REPLACEMENT THERAPY
     Dates: start: 19801002, end: 19800101
  4. VIVELLE [Suspect]
     Indication: HORMONE REPLACEMENT THERAPY
  5. ALORA [Suspect]
     Indication: HORMONE REPLACEMENT THERAPY
     Dosage: 0.1 MG,2 MG, 2X/WEEK
     Dates: start: 19980623
  6. CELEBREX [Concomitant]
  7. MEDROL [Concomitant]
  8. BELLERGAL-S (BELLADONNA ALKALOIDS, PHENOBARBITAL) [Concomitant]
  9. PROTONIX [Concomitant]
  10. SKELAXIN [Concomitant]
  11. ZANTAC [Concomitant]

REACTIONS (14)
  - BREAST CANCER FEMALE [None]
  - BREAST CANCER IN SITU [None]
  - BREAST CYST [None]
  - BREAST MICROCALCIFICATION [None]
  - CHOLECYSTITIS CHRONIC [None]
  - CHOLELITHIASIS [None]
  - CONDITION AGGRAVATED [None]
  - CRYING [None]
  - DEPRESSION [None]
  - FIBROCYSTIC BREAST DISEASE [None]
  - HOT FLUSH [None]
  - INSOMNIA [None]
  - MENOPAUSAL SYMPTOMS [None]
  - NECROSIS [None]
